FAERS Safety Report 23124621 (Version 3)
Quarter: 2023Q4

REPORT INFORMATION
  Report Type: Spontaneous
  Country: NL (occurrence: NL)
  Receive Date: 20231030
  Receipt Date: 20231218
  Transmission Date: 20240109
  Serious: Yes (Hospitalization, Other)
  Sender: FDA-Public Use
  Company Number: NL-SA-SAC20230303001013

PATIENT
  Age: 60 Year
  Sex: Female
  Weight: 54.1 kg

DRUGS (4)
  1. TERIFLUNOMIDE [Suspect]
     Active Substance: TERIFLUNOMIDE
     Indication: Relapsing-remitting multiple sclerosis
     Dosage: 14 MG, QD
     Route: 048
     Dates: start: 202203
  2. TERIFLUNOMIDE [Suspect]
     Active Substance: TERIFLUNOMIDE
     Dosage: 14 MG, QD
     Route: 048
     Dates: start: 202203
  3. TERIFLUNOMIDE [Suspect]
     Active Substance: TERIFLUNOMIDE
     Dosage: 14 MG, QD
     Route: 048
     Dates: start: 202203
  4. AMOXICILLIN AND CLAVULANATE POTASSIUM [Concomitant]
     Active Substance: AMOXICILLIN\CLAVULANATE POTASSIUM
     Indication: Product used for unknown indication
     Dosage: 500/125MG
     Route: 065

REACTIONS (18)
  - Intra-abdominal fluid collection [Recovered/Resolved]
  - Metastatic lymphoma [Unknown]
  - Abdominal pain [Recovered/Resolved]
  - Nephrolithiasis [Not Recovered/Not Resolved]
  - Groin abscess [Not Recovered/Not Resolved]
  - Hydronephrosis [Recovered/Resolved]
  - Blindness transient [Recovered/Resolved]
  - Genital tract inflammation [Recovered/Resolved]
  - Intestinal polyp [Recovering/Resolving]
  - Swelling [Unknown]
  - Blood urine present [Unknown]
  - Dermal cyst [Not Recovered/Not Resolved]
  - Lymphadenopathy [Not Recovered/Not Resolved]
  - Foreign body in eye [Unknown]
  - Blood pressure increased [Recovered/Resolved]
  - Decreased appetite [Not Recovered/Not Resolved]
  - Illness [Not Recovered/Not Resolved]
  - Weight decreased [Not Recovered/Not Resolved]

NARRATIVE: CASE EVENT DATE: 20230101
